FAERS Safety Report 22588497 (Version 1)
Quarter: 2023Q2

REPORT INFORMATION
  Report Type: Report from Study
  Country: AR (occurrence: AR)
  Receive Date: 20230612
  Receipt Date: 20230612
  Transmission Date: 20230721
  Serious: Yes (Death, Hospitalization)
  Sender: FDA-Public Use
  Company Number: AR-002147023-NVSC2023AR126905

PATIENT
  Age: 50 Year
  Sex: Female

DRUGS (4)
  1. RIBOCICLIB [Suspect]
     Active Substance: RIBOCICLIB
     Indication: Breast cancer metastatic
     Dosage: UNK
     Route: 065
     Dates: start: 20230505
  2. RIBOCICLIB [Suspect]
     Active Substance: RIBOCICLIB
     Dosage: 3 DOSAGE FORM, QD FOR 21 DAYS, 1 WEEK OFF
     Route: 065
     Dates: end: 20230518
  3. LETROZOLE [Suspect]
     Active Substance: LETROZOLE
     Indication: Breast cancer metastatic
     Dosage: UNK
     Route: 065
     Dates: start: 20230505
  4. LETROZOLE [Suspect]
     Active Substance: LETROZOLE
     Dosage: 1 DOSAGE FORM, QD ( PER DAY EVERY DAY)
     Route: 065
     Dates: end: 20230518

REACTIONS (4)
  - Neoplasm malignant [Fatal]
  - Metastasis [Fatal]
  - Loss of consciousness [Unknown]
  - Dysphagia [Unknown]

NARRATIVE: CASE EVENT DATE: 20230524
